FAERS Safety Report 5503161-6 (Version None)
Quarter: 2007Q4

REPORT INFORMATION
  Report Type: 
  Country: None (occurrence: None)
  Receive Date: 20071029
  Receipt Date: 20071018
  Transmission Date: 20080405
  Serious: Yes (Hospitalization, Other)
  Sender: FDA-Public Use
  Company Number: MED-06206

PATIENT
  Age: 47 Year
  Sex: Female

DRUGS (24)
  1. BACTRIM [Suspect]
     Dosage: ORAL
     Route: 048
     Dates: end: 20061020
  2. TEMODAR [Suspect]
     Indication: GLIOBLASTOMA MULTIFORME
     Dosage: 75 MG/M^2
     Dates: start: 20060829, end: 20060925
  3. RADIATION THERAPY [Concomitant]
  4. DIFLUCAN [Concomitant]
  5. VALTREX [Concomitant]
  6. UNSPECIFIED IV ANTIBIOTICS [Concomitant]
  7. KEPPRA [Concomitant]
  8. PREMPRO [Concomitant]
  9. ZOFRAN [Concomitant]
  10. RUTOVIT C [Concomitant]
  11. LYCOPENE [Concomitant]
  12. COQ10 [Concomitant]
  13. SHARK LIVER OIL [Concomitant]
  14. ARNICA MONTANA 4C [Concomitant]
  15. HAMAMELIS VIRGINIANA [Concomitant]
  16. KALI MUR [Concomitant]
  17. CALCIUM PHOSPHOROUS [Concomitant]
  18. OMEGA FISH OIL [Concomitant]
  19. FERROUS PHOSPHATE [Concomitant]
  20. M.V.I. [Concomitant]
  21. VITAMIN C, D , E AND B12 [Concomitant]
  22. BETA CAROTENE [Concomitant]
  23. FLAXSEED OIL [Concomitant]
  24. NEULASTA [Concomitant]

REACTIONS (11)
  - ANORECTAL CELLULITIS [None]
  - APLASTIC ANAEMIA [None]
  - FEBRILE NEUTROPENIA [None]
  - GLIOBLASTOMA MULTIFORME [None]
  - HAEMORRHOIDS [None]
  - LYMPHOPENIA [None]
  - MALIGNANT NEOPLASM PROGRESSION [None]
  - MYELODYSPLASTIC SYNDROME [None]
  - PROCTALGIA [None]
  - THROMBOCYTOPENIA [None]
  - WHITE BLOOD CELL COUNT DECREASED [None]
